FAERS Safety Report 22376854 (Version 4)
Quarter: 2024Q2

REPORT INFORMATION
  Report Type: Report from Study
  Country: US (occurrence: US)
  Receive Date: 20230529
  Receipt Date: 20240503
  Transmission Date: 20240715
  Serious: Yes (Other)
  Sender: FDA-Public Use
  Company Number: US-TAKEDA-US201606385

PATIENT
  Sex: Female

DRUGS (2)
  1. VELAGLUCERASE ALFA [Suspect]
     Active Substance: VELAGLUCERASE ALFA
     Indication: Gaucher^s disease
     Dosage: UNK
     Route: 042
     Dates: start: 20100720
  2. VELAGLUCERASE ALFA [Suspect]
     Active Substance: VELAGLUCERASE ALFA
     Dosage: UNK
     Route: 058

REACTIONS (6)
  - Surgery [Unknown]
  - Arthritis [Unknown]
  - Insurance issue [Unknown]
  - Device issue [Unknown]
  - Inappropriate schedule of product administration [Unknown]
  - Product dose omission issue [Unknown]
